FAERS Safety Report 21214276 (Version 1)
Quarter: 2022Q3

REPORT INFORMATION
  Report Type: Spontaneous
  Country: US (occurrence: US)
  Receive Date: 20220816
  Receipt Date: 20220816
  Transmission Date: 20221026
  Serious: No
  Sender: FDA-Public Use
  Company Number: US-ALFASIGMA USA, INC.-2022US000212

PATIENT

DRUGS (5)
  1. ZELNORM [Suspect]
     Active Substance: TEGASEROD MALEATE
     Dosage: 6 MG, BID
  2. ZELNORM [Suspect]
     Active Substance: TEGASEROD MALEATE
     Dosage: UNK
     Dates: start: 20220109
  3. MESTINON [Concomitant]
     Active Substance: PYRIDOSTIGMINE BROMIDE
     Indication: Irritable bowel syndrome
  4. HYOSCYAMINE SULFATE [Concomitant]
     Active Substance: HYOSCYAMINE SULFATE
     Indication: Irritable bowel syndrome
  5. MIRALAX [Concomitant]
     Active Substance: POLYETHYLENE GLYCOL 3350
     Indication: Irritable bowel syndrome

REACTIONS (1)
  - Product dose omission issue [Recovered/Resolved]

NARRATIVE: CASE EVENT DATE: 20211201
